FAERS Safety Report 6758592-3 (Version None)
Quarter: 2010Q2

REPORT INFORMATION
  Report Type: 
  Country: None (occurrence: None)
  Receive Date: 20100524
  Receipt Date: 20100326
  Transmission Date: 20101027
  Serious: No
  Sender: FDA-Public Use
  Company Number: 009449

PATIENT
  Sex: Female

DRUGS (2)
  1. CIMZIA [Suspect]
     Indication: CROHN'S DISEASE
     Dosage: (400 MG X/MONTH SUBCUTANEOUS)
     Route: 058
     Dates: start: 20090909
  2. PREDNISONE [Concomitant]

REACTIONS (4)
  - DECREASED APPETITE [None]
  - MALAISE [None]
  - ORAL PAIN [None]
  - TOOTH EXTRACTION [None]
